FAERS Safety Report 18597042 (Version 1)
Quarter: 2020Q4

REPORT INFORMATION
  Report Type: Spontaneous
  Country: IT (occurrence: IT)
  Receive Date: 20201209
  Receipt Date: 20201209
  Transmission Date: 20210114
  Serious: Yes (Hospitalization)
  Sender: FDA-Public Use
  Company Number: IT-BAUSCH-BL-2020-035126

PATIENT
  Age: 40 Year
  Sex: Female

DRUGS (2)
  1. VENLAFAXINE [Suspect]
     Active Substance: VENLAFAXINE HYDROCHLORIDE
     Indication: PRODUCT USED FOR UNKNOWN INDICATION
     Route: 048
  2. ABILIFY [Interacting]
     Active Substance: ARIPIPRAZOLE
     Indication: PRODUCT USED FOR UNKNOWN INDICATION
     Route: 048
     Dates: start: 20201103, end: 20201112

REACTIONS (2)
  - Drug interaction [Recovering/Resolving]
  - Tremor [Recovering/Resolving]

NARRATIVE: CASE EVENT DATE: 20201106
